FAERS Safety Report 22012272 (Version 8)
Quarter: 2023Q1

REPORT INFORMATION
  Report Type: Report from Study
  Country: GB (occurrence: None)
  Receive Date: 20230220
  Receipt Date: 20230329
  Transmission Date: 20230418
  Serious: Yes (Hospitalization)
  Sender: FDA-Public Use
  Company Number: GB-ROCHE-3284235

PATIENT
  Age: 54 Year
  Sex: Female
  Weight: 96.1 kg

DRUGS (19)
  1. ATEZOLIZUMAB [Suspect]
     Active Substance: ATEZOLIZUMAB
     Indication: Malignant neoplasm of unknown primary site
     Dosage: DATE OF LAST DOSE OF TREATMENT STUDY DRUG 1 PRIOR TO SAE/AESI ONSET WAS 25/JAN/2023.
     Route: 041
     Dates: start: 20230125
  2. GEMCITABINE [Suspect]
     Active Substance: GEMCITABINE
     Indication: Malignant neoplasm of unknown primary site
     Dosage: DATE AND DOSE OF LAST DOSE OF INDUCTION STUDY DRUG 1 PRIOR TO SAE/AESI ONSET WAS 14/DEC/2022, 2052 U
     Route: 042
     Dates: start: 20221027
  3. GEMCITABINE [Suspect]
     Active Substance: GEMCITABINE
     Dosage: DATE OF LAST DOSE OF TREATMENT STUDY DRUG 2 PRIOR TO SAE/AESI ONSET WAS 25/JAN/2023.
     Route: 042
     Dates: start: 20230125
  4. CARBOPLATIN [Suspect]
     Active Substance: CARBOPLATIN
     Indication: Malignant neoplasm of unknown primary site
     Dosage: DATE OF LAST DOSE (660 UNIT REPORTED) OF INDUCTION STUDY DRUG 2 PRIOR TO SAE/AESI ONSET WAS 07/DEC/2
     Route: 042
     Dates: start: 20221027
  5. CARBOPLATIN [Suspect]
     Active Substance: CARBOPLATIN
     Dosage: DATE OF LAST DOSE OF TREATMENT STUDY DRUG 3 PRIOR TO SAE/AESI ONSET WAS 25/JAN/2023, 660 UNIT NOT RE
     Route: 042
     Dates: start: 20230125
  6. COCODAMOL [Concomitant]
     Active Substance: ACETAMINOPHEN\CODEINE PHOSPHATE
     Indication: Back pain
     Dates: start: 20221106
  7. NEFOPAM [Concomitant]
     Active Substance: NEFOPAM
     Route: 048
  8. ACETAMINOPHEN [Concomitant]
     Active Substance: ACETAMINOPHEN
     Route: 048
  9. DIHYDROCODEINE [Concomitant]
     Active Substance: DIHYDROCODEINE
     Route: 048
  10. CLOPIDOGREL [Concomitant]
     Active Substance: CLOPIDOGREL BISULFATE
     Route: 048
  11. LISINOPRIL [Concomitant]
     Active Substance: LISINOPRIL
     Route: 048
  12. LANSOPRAZOLE [Concomitant]
     Active Substance: LANSOPRAZOLE
     Route: 048
  13. FERROUS FUMARATE [Concomitant]
     Active Substance: FERROUS FUMARATE
     Route: 048
  14. MORPHINE SULFATE [Concomitant]
     Active Substance: MORPHINE SULFATE
     Route: 048
     Dates: start: 20221104, end: 20230206
  15. MORPHINE SULFATE [Concomitant]
     Active Substance: MORPHINE SULFATE
     Route: 048
     Dates: start: 20230207
  16. AMITRIPTYLINE [Concomitant]
     Active Substance: AMITRIPTYLINE
     Route: 048
  17. HYDROXYZINE [Concomitant]
     Active Substance: HYDROXYZINE HYDROCHLORIDE
     Route: 048
     Dates: start: 20210528
  18. SERTRALINE [Concomitant]
     Active Substance: SERTRALINE HYDROCHLORIDE
     Route: 048
     Dates: start: 20170622
  19. CALCIUM CARBONATE\CHOLECALCIFEROL [Concomitant]
     Active Substance: CALCIUM CARBONATE\CHOLECALCIFEROL
     Route: 048
     Dates: start: 20230214

REACTIONS (1)
  - Cystitis [Recovered/Resolved]

NARRATIVE: CASE EVENT DATE: 20230201
